FAERS Safety Report 4648298-9 (Version None)
Quarter: 2005Q2

REPORT INFORMATION
  Report Type: 
  Country: None (occurrence: None)
  Receive Date: 20050331
  Receipt Date: 20041227
  Transmission Date: 20051028
  Serious: No
  Sender: FDA-Public Use
  Company Number: 04P-163-0284775-00

PATIENT
  Age: 81 Year
  Sex: Female
  Weight: 48.9885 kg

DRUGS (7)
  1. HUMIRA [Suspect]
     Indication: RHEUMATOID ARTHRITIS
     Dosage: 40 MG, 1 IN 2 WK, SUBCUTANEOUS
     Route: 058
     Dates: start: 20041001, end: 20041225
  2. METHOTREXATE [Concomitant]
  3. AMLODIPINE BESYLATE [Concomitant]
  4. DIGOXIN [Concomitant]
  5. PREDNISONE TAB [Concomitant]
  6. CALCIUM GLUCONATE [Concomitant]
  7. FOLIC ACID [Concomitant]

REACTIONS (1)
  - DRUG INEFFECTIVE [None]
